FAERS Safety Report 24808567 (Version 1)
Quarter: 2025Q1

REPORT INFORMATION
  Report Type: Spontaneous
  Country: DE (occurrence: DE)
  Receive Date: 20250106
  Receipt Date: 20250106
  Transmission Date: 20250409
  Serious: Yes (Hospitalization)
  Sender: ALEXION PHARMACEUTICALS
  Company Number: DE-PEI-202400026318

PATIENT
  Age: 9 Week
  Weight: 5.9 kg

DRUGS (4)
  1. NIRSEVIMAB [Suspect]
     Active Substance: NIRSEVIMAB
     Indication: Respiratory syncytial virus immunisation
     Route: 065
  2. NIRSEVIMAB [Suspect]
     Active Substance: NIRSEVIMAB
     Route: 065
  3. NIRSEVIMAB [Suspect]
     Active Substance: NIRSEVIMAB
     Route: 065
  4. NIRSEVIMAB [Suspect]
     Active Substance: NIRSEVIMAB
     Route: 065

REACTIONS (2)
  - Vomiting [Recovered/Resolved]
  - Urticaria [Not Recovered/Not Resolved]
